FAERS Safety Report 6613430-4 (Version None)
Quarter: 2010Q1

REPORT INFORMATION
  Report Type: 
  Country: None (occurrence: None)
  Receive Date: 20100225
  Receipt Date: 20100216
  Transmission Date: 20100710
  Serious: Yes (Death, Hospitalization)
  Sender: FDA-Public Use
  Company Number: 100217-0000203

PATIENT
  Age: 42 Year
  Sex: Male

DRUGS (9)
  1. TRANXENE [Suspect]
     Indication: ANXIOLYTIC THERAPY
     Dosage: PO
     Route: 048
     Dates: end: 20061213
  2. EPIRUBICIN HCL (NO PREF. NAME) [Suspect]
     Indication: GASTRIC CANCER
     Dosage: 80 MG/M2; IV, 160 MG
     Route: 042
     Dates: start: 20061102, end: 20061123
  3. CISPLATIN [Suspect]
     Indication: GASTRIC CANCER
     Dosage: 95 MG/M2; IV, 190 MG
     Route: 042
     Dates: start: 20061102, end: 20061123
  4. XELODA [Suspect]
     Indication: GASTRIC CANCER
     Dosage: 3300 MG; PO, 3000 MG; PO
     Route: 048
     Dates: start: 20061102, end: 20061123
  5. XELODA [Suspect]
     Indication: GASTRIC CANCER
     Dosage: 3300 MG; PO, 3000 MG; PO
     Route: 048
     Dates: start: 20061123, end: 20061218
  6. HALDOL [Concomitant]
  7. ACTISKENAN [Concomitant]
  8. NEXIUM [Concomitant]
  9. DURAGESIC-100 [Concomitant]

REACTIONS (6)
  - APLASIA [None]
  - COMA [None]
  - GENERAL PHYSICAL CONDITION ABNORMAL [None]
  - MALIGNANT NEOPLASM PROGRESSION [None]
  - METASTATIC GASTRIC CANCER [None]
  - OVERDOSE [None]
